FAERS Safety Report 16591481 (Version 2)
Quarter: 2019Q3

REPORT INFORMATION
  Report Type: Spontaneous
  Country: US (occurrence: US)
  Receive Date: 20190718
  Receipt Date: 20190723
  Transmission Date: 20191004
  Serious: Yes (Other)
  Sender: FDA-Public Use
  Company Number: US-PFIZER INC-2019302816

PATIENT
  Age: 66 Year
  Sex: Female
  Weight: 53.52 kg

DRUGS (1)
  1. ALPRAZOLAM. [Suspect]
     Active Substance: ALPRAZOLAM
     Indication: ANXIETY
     Dosage: 0.5 MG, AS NEEDED

REACTIONS (4)
  - Drug ineffective [Unknown]
  - Product complaint [Unknown]
  - Skin cancer [Unknown]
  - Asthenopia [Unknown]

NARRATIVE: CASE EVENT DATE: 201907
